FAERS Safety Report 22079893 (Version 1)
Quarter: 2023Q1

REPORT INFORMATION
  Report Type: Spontaneous
  Country: KE (occurrence: KE)
  Receive Date: 20230309
  Receipt Date: 20230309
  Transmission Date: 20230418
  Serious: Yes (Hospitalization)
  Sender: FDA-Public Use
  Company Number: KE-BAYER-2023A029621

PATIENT
  Age: 75 Year
  Sex: Male

DRUGS (1)
  1. RIVAROXABAN [Suspect]
     Active Substance: RIVAROXABAN
     Indication: Pulmonary embolism
     Dosage: 20 MG, QD
     Route: 048

REACTIONS (3)
  - Pulmonary embolism [Not Recovered/Not Resolved]
  - Thrombosis [Unknown]
  - Drug ineffective [Unknown]

NARRATIVE: CASE EVENT DATE: 20230307
